FAERS Safety Report 5540828-8 (Version None)
Quarter: 2007Q4

REPORT INFORMATION
  Report Type: 
  Country: None (occurrence: None)
  Receive Date: 20071129
  Receipt Date: 20070501
  Transmission Date: 20080405
  Serious: Yes (Hospitalization, Other)
  Sender: FDA-Public Use
  Company Number: US200703004535

PATIENT
  Age: 39 Year
  Sex: Female
  Weight: 87.1 kg

DRUGS (7)
  1. ZYPREXA [Suspect]
     Dosage: 20 MG,
     Dates: start: 20021101, end: 20030601
  2. CLOZARIL [Concomitant]
  3. SEROQUEL [Concomitant]
  4. RISPERIDONE [Concomitant]
  5. HALDOL (HALOPERIDOL DECANOATE) [Concomitant]
  6. STELAZINE [Concomitant]
  7. DEPAKOTE [Concomitant]

REACTIONS (5)
  - BLOOD CHOLESTEROL INCREASED [None]
  - DIABETES MELLITUS [None]
  - DIABETIC KETOACIDOSIS [None]
  - HYPERTENSION [None]
  - METABOLIC DISORDER [None]
